FAERS Safety Report 23745423 (Version 2)
Quarter: 2024Q2

REPORT INFORMATION
  Report Type: Spontaneous
  Country: DE (occurrence: DE)
  Receive Date: 20240416
  Receipt Date: 20240527
  Transmission Date: 20240716
  Serious: Yes (Hospitalization, Other)
  Sender: FDA-Public Use
  Company Number: DE-BoehringerIngelheim-2024-BI-020740

PATIENT
  Age: 59 Year
  Sex: Male

DRUGS (7)
  1. NINTEDANIB [Suspect]
     Active Substance: NINTEDANIB
     Indication: Non-small cell lung cancer
     Dates: start: 202101
  2. NINTEDANIB [Suspect]
     Active Substance: NINTEDANIB
     Indication: Systemic sclerosis pulmonary
     Dates: end: 202303
  3. NINTEDANIB [Suspect]
     Active Substance: NINTEDANIB
     Indication: Systemic scleroderma
  4. CYCLOPHOSPHAMIDE [Concomitant]
     Active Substance: CYCLOPHOSPHAMIDE
     Indication: Systemic sclerosis pulmonary
     Dosage: 16 BOLUSES
     Dates: start: 202101
  5. MYCOPHENOLATE MOFETIL [Concomitant]
     Active Substance: MYCOPHENOLATE MOFETIL
     Indication: Systemic sclerosis pulmonary
     Dosage: 3 G/DAY
     Route: 048
     Dates: end: 202303
  6. RITUXIMAB [Concomitant]
     Active Substance: RITUXIMAB
     Indication: Systemic sclerosis pulmonary
     Dosage: 8 BOLUSES
     Dates: start: 202101, end: 202303
  7. CYCLOSPORINE [Concomitant]
     Active Substance: CYCLOSPORINE
     Indication: Systemic sclerosis pulmonary
     Dosage: 150 MG/DAY
     Route: 048
     Dates: start: 202101, end: 202303

REACTIONS (10)
  - Malignant pleural effusion [Unknown]
  - Respiratory tract infection [Recovered/Resolved]
  - Infectious pleural effusion [Recovered/Resolved]
  - Squamous cell carcinoma [Unknown]
  - Sarcopenia [Unknown]
  - Humerus fracture [Unknown]
  - Fall [Unknown]
  - Dyspnoea exertional [Unknown]
  - Weight decreased [Unknown]
  - Extremity contracture [Unknown]

NARRATIVE: CASE EVENT DATE: 20230301
